FAERS Safety Report 17601249 (Version 2)
Quarter: 2020Q2

REPORT INFORMATION
  Report Type: Spontaneous
  Country: HR (occurrence: HR)
  Receive Date: 20200330
  Receipt Date: 20200408
  Transmission Date: 20200713
  Serious: Yes (Other)
  Sender: FDA-Public Use
  Company Number: HR-US-PROVELL PHARMACEUTICALS LLC-9153141

PATIENT
  Age: 71 Year
  Sex: Female

DRUGS (4)
  1. LORISTA [Suspect]
     Active Substance: LOSARTAN POTASSIUM
     Indication: HYPERTENSION
     Dates: start: 2005
  2. EUTHYROX [Suspect]
     Active Substance: LEVOTHYROXINE SODIUM
     Dosage: NEW FORMULATION STARTED ON JAN 2020
     Route: 048
  3. EUTHYROX [Suspect]
     Active Substance: LEVOTHYROXINE SODIUM
     Indication: HYPOTHYROIDISM
     Dosage: OLD FORMULATION
     Dates: start: 2005, end: 202001
  4. ALDIZEM /00489701/ [Suspect]
     Active Substance: DILTIAZEM
     Indication: HYPERTENSION
     Dates: start: 2005

REACTIONS (3)
  - Renal impairment [Unknown]
  - Influenza [Recovered/Resolved]
  - Lipids increased [Unknown]

NARRATIVE: CASE EVENT DATE: 201912
